FAERS Safety Report 5673984-1 (Version None)
Quarter: 2008Q1

REPORT INFORMATION
  Report Type: 
  Country: None (occurrence: None)
  Receive Date: 20080319
  Receipt Date: 20080319
  Transmission Date: 20080703
  Serious: No
  Sender: FDA-Public Use
  Company Number: None

PATIENT
  Sex: Male
  Weight: 74.8435 kg

DRUGS (3)
  1. TECHNICARE NDC # 46706-222-05 [Suspect]
     Indication: PREOPERATIVE CARE
     Dosage: PRE SURGICAL  USE  TOPICAL;  SURGICAL PREP TOPICAL
     Route: 061
     Dates: start: 20071014
  2. TECHNICARE NDC # 46706-222-05 [Suspect]
     Indication: PREOPERATIVE CARE
     Dosage: PRE SURGICAL  USE  TOPICAL;  SURGICAL PREP TOPICAL
     Route: 061
     Dates: start: 20071017
  3. BACITRACIN [Concomitant]

REACTIONS (1)
  - CAUSTIC INJURY [None]
